FAERS Safety Report 18432476 (Version 1)
Quarter: 2020Q4

REPORT INFORMATION
  Report Type: Report from Study
  Country: CA (occurrence: CA)
  Receive Date: 20201027
  Receipt Date: 20201027
  Transmission Date: 20210114
  Serious: Yes (Other)
  Sender: FDA-Public Use
  Company Number: CA-NALPROPION PHARMACEUTICALS INC.-2020-011511

PATIENT

DRUGS (1)
  1. CONTRAVE [Suspect]
     Active Substance: BUPROPION HYDROCHLORIDE\NALTREXONE HYDROCHLORIDE
     Indication: WEIGHT CONTROL
     Dosage: 90 MG/8 MG (1 DOSAGE FORMS,1 IN 1 D)
     Route: 048
     Dates: start: 20201006, end: 20201008

REACTIONS (12)
  - Loss of personal independence in daily activities [Unknown]
  - Confusional state [Unknown]
  - Balance disorder [Unknown]
  - Thinking abnormal [Unknown]
  - Feeling cold [Unknown]
  - Somnolence [Unknown]
  - Vomiting [Unknown]
  - Diarrhoea [Unknown]
  - Hot flush [Unknown]
  - Impaired driving ability [Unknown]
  - Nausea [Unknown]
  - Feeling abnormal [Unknown]

NARRATIVE: CASE EVENT DATE: 20201006
